FAERS Safety Report 5453958-6 (Version None)
Quarter: 2007Q3

REPORT INFORMATION
  Report Type: 
  Country: None (occurrence: None)
  Receive Date: 20070917
  Receipt Date: 20070228
  Transmission Date: 20080115
  Serious: Yes (Hospitalization, Other)
  Sender: FDA-Public Use
  Company Number: US-ASTRAZENECA-2006UW01660

PATIENT
  Age: 13562 Day
  Sex: Female
  Weight: 60 kg

DRUGS (9)
  1. SEROQUEL [Suspect]
     Indication: SCHIZOPHRENIA
     Dosage: 100 - 300 MG
     Route: 048
     Dates: start: 19990802, end: 20060309
  2. RISPERDAL [Suspect]
  3. ZYPREXA [Suspect]
     Dates: start: 19960101, end: 19970101
  4. GEODON [Concomitant]
     Dates: start: 19900101
  5. HALDOL [Concomitant]
     Dates: start: 19920101
  6. NAVANE [Concomitant]
  7. THORAZINE [Concomitant]
     Dates: start: 19970101
  8. SYMBYAX [Concomitant]
     Dates: start: 19960101, end: 19970101
  9. OTHER PSYCHIATRIC MEDICATION [Concomitant]

REACTIONS (2)
  - PANCREATITIS ACUTE [None]
  - TARDIVE DYSKINESIA [None]
